FAERS Safety Report 8468737 (Version 10)
Quarter: 2013Q3

REPORT INFORMATION
  Report Type: Spontaneous
  Country: US (occurrence: US)
  Receive Date: 20120320
  Receipt Date: 20130725
  Transmission Date: 20140515
  Serious: Yes (Hospitalization, Disabling, Other)
  Sender: FDA-Public Use
  Company Number: US-ASTRAZENECA-2011SE32269

PATIENT
  Age: 64 Year
  Sex: Female
  Weight: 62.6 kg

DRUGS (73)
  1. ZOCOR [Concomitant]
     Route: 048
     Dates: start: 201004
  2. RESTORIL [Concomitant]
     Route: 048
     Dates: start: 201004
  3. QUESTRAN [Concomitant]
     Route: 048
     Dates: start: 201004
  4. NORCO [Concomitant]
     Dosage: 5 AND 325 MG TAKE 1 TO 2
  5. DARVOCET [Concomitant]
  6. PROMETHAZINE HCL [Concomitant]
     Dosage: 1 TABLET 6-8 HRS AE PER NEED POST NAUSEA
  7. MOBIC [Concomitant]
     Route: 048
  8. CLINORIL [Concomitant]
  9. NEXIUM [Suspect]
     Indication: GASTROOESOPHAGEAL REFLUX DISEASE
     Route: 048
     Dates: start: 200101, end: 200502
  10. NEXIUM [Suspect]
     Indication: GASTROOESOPHAGEAL REFLUX DISEASE
     Route: 048
     Dates: start: 2002, end: 2009
  11. NEXIUM [Suspect]
     Indication: GASTROOESOPHAGEAL REFLUX DISEASE
     Dosage: ONCE A DAY EVERYDAY
     Route: 048
     Dates: start: 2004, end: 2008
  12. NEXIUM [Suspect]
     Indication: GASTROOESOPHAGEAL REFLUX DISEASE
     Route: 048
     Dates: start: 20060925
  13. NEXIUM [Suspect]
     Indication: GASTROOESOPHAGEAL REFLUX DISEASE
     Route: 048
     Dates: start: 20060126
  14. TUMS [Concomitant]
     Indication: DYSPEPSIA
  15. MILK OF MAGNESIA [Concomitant]
  16. MEDROL DOSEPAK [Concomitant]
     Indication: OEDEMA PERIPHERAL
     Dates: start: 2003
  17. MEDROL DOSEPAK [Concomitant]
     Indication: JOINT SWELLING
     Dates: start: 2003
  18. CLONAZEPAM/KLONOPIN [Concomitant]
     Dates: start: 19961227
  19. CLONAZEPAM/KLONOPIN [Concomitant]
     Dates: start: 20021105
  20. CLONAZEPAM/KLONOPIN [Concomitant]
     Dates: start: 20030411
  21. CLONAZEPAM/KLONOPIN [Concomitant]
     Dosage: 0.5 MG 1 HS AND PRN
     Dates: start: 20060925
  22. CLONAZEPAM/KLONOPIN [Concomitant]
     Dates: start: 20080317
  23. CLONAZEPAM/KLONOPIN [Concomitant]
     Route: 048
     Dates: start: 201004
  24. LASIX [Concomitant]
     Indication: DIURETIC THERAPY
     Dates: start: 19961227
  25. LASIX [Concomitant]
     Indication: SLEEP DISORDER
     Dates: start: 19961227
  26. LASIX [Concomitant]
     Indication: DIURETIC THERAPY
     Dates: start: 20021105
  27. LASIX [Concomitant]
     Indication: SLEEP DISORDER
     Dates: start: 20021105
  28. LASIX [Concomitant]
     Indication: DIURETIC THERAPY
     Dates: start: 20080317
  29. LASIX [Concomitant]
     Indication: SLEEP DISORDER
     Dates: start: 20080317
  30. LASIX [Concomitant]
     Indication: DIURETIC THERAPY
     Route: 048
     Dates: start: 201004
  31. LASIX [Concomitant]
     Indication: SLEEP DISORDER
     Route: 048
     Dates: start: 201004
  32. SPIRONOLACTONE/ALDACTONE [Concomitant]
     Dates: start: 19961227
  33. SPIRONOLACTONE/ALDACTONE [Concomitant]
     Dates: start: 20021105
  34. SPIRONOLACTONE/ALDACTONE [Concomitant]
     Dates: start: 20060925
  35. SPIRONOLACTONE/ALDACTONE [Concomitant]
     Dates: start: 20080317
  36. SPIRONOLACTONE/ALDACTONE [Concomitant]
     Route: 048
     Dates: start: 201004
  37. SYNTHROID/LEVOTHYROXINE [Concomitant]
     Indication: THYROID DISORDER
     Dates: start: 19961227
  38. SYNTHROID/LEVOTHYROXINE [Concomitant]
     Indication: THYROID DISORDER
     Dates: start: 20021105
  39. SYNTHROID/LEVOTHYROXINE [Concomitant]
     Indication: THYROID DISORDER
     Dates: start: 20060925
  40. SYNTHROID/LEVOTHYROXINE [Concomitant]
     Indication: THYROID DISORDER
     Dates: start: 20080317
  41. SYNTHROID/LEVOTHYROXINE [Concomitant]
     Indication: THYROID DISORDER
     Route: 048
     Dates: start: 201004
  42. SYNTHROID/LEVOTHYROXINE [Concomitant]
     Indication: THYROID DISORDER
     Route: 048
  43. ACTIGALL/URSODIOL [Concomitant]
     Dates: start: 20060925
  44. ACTIGALL/URSODIOL [Concomitant]
     Dates: start: 20080317
  45. ACTIGALL/URSODIOL [Concomitant]
     Dates: start: 20021105
  46. ACTIGALL/URSODIOL [Concomitant]
     Route: 048
     Dates: start: 201004
  47. ESTRACE/ESTRADIOL [Concomitant]
     Dates: start: 20021105
  48. ESTRACE/ESTRADIOL [Concomitant]
     Dates: start: 20080317
  49. ESTRACE/ESTRADIOL [Concomitant]
     Route: 048
     Dates: start: 201004
  50. PREMARIN [Concomitant]
     Dates: start: 19961227
  51. PREMARIN [Concomitant]
     Dates: start: 20060925
  52. LEXAPRO [Concomitant]
     Dates: start: 20060925
  53. ZETIA [Concomitant]
     Dates: start: 20060925
  54. FOSAMAX [Concomitant]
     Dosage: 70 MG PER WEEK
     Dates: start: 20060925
  55. AMITRIPTYLINE/ELAVIL [Concomitant]
     Indication: SLEEP DISORDER
     Dates: start: 19961227
  56. AMITRIPTYLINE/ELAVIL [Concomitant]
     Indication: SLEEP DISORDER
     Dates: start: 20020205
  57. AMITRIPTYLINE/ELAVIL [Concomitant]
     Indication: SLEEP DISORDER
     Dates: start: 20060925
  58. AMITRIPTYLINE/ELAVIL [Concomitant]
     Indication: SLEEP DISORDER
     Dates: start: 20060925
  59. AMITRIPTYLINE/ELAVIL [Concomitant]
     Indication: SLEEP DISORDER
     Route: 048
     Dates: start: 201004
  60. PROVERA [Concomitant]
     Dosage: 10 MG FROM FIRST THROUGH THE TENTH DAY OF THE MONTH
     Dates: start: 19961227
  61. PREVACID [Concomitant]
     Dates: start: 19961227
  62. PRILOSEC [Concomitant]
     Dates: start: 20021217
  63. PRILOSEC [Concomitant]
     Dates: start: 20030507
  64. ACTONEL [Concomitant]
     Dates: start: 20021223
  65. PAXIL [Concomitant]
     Dates: start: 20021230
  66. XENICAL [Concomitant]
     Dates: start: 20030211
  67. CLINDAMYCIN [Concomitant]
     Indication: SINUSITIS
     Dates: start: 20021105
  68. CLARITIN [Concomitant]
     Dates: start: 20021105
  69. ZAROXOLYN [Concomitant]
     Dates: start: 20021105
  70. CELEBREX [Concomitant]
     Route: 048
     Dates: start: 20021105
  71. FLEXERIL [Concomitant]
     Dates: start: 20021105
  72. PROTONIX [Concomitant]
     Dates: start: 20021105
  73. MAG-OX [Concomitant]
     Route: 048
     Dates: start: 201004

REACTIONS (11)
  - Lower limb fracture [Unknown]
  - Ankle fracture [Unknown]
  - Fall [Unknown]
  - Osteoporosis [Unknown]
  - Osteoarthritis [Unknown]
  - Pain [Unknown]
  - Cellulitis [Unknown]
  - Arthritis [Unknown]
  - Joint effusion [Unknown]
  - Depression [Unknown]
  - Local swelling [Unknown]
